FAERS Safety Report 21885477 (Version 1)
Quarter: 2023Q1

REPORT INFORMATION
  Report Type: Spontaneous
  Country: US (occurrence: None)
  Receive Date: 20230118
  Receipt Date: 20230118
  Transmission Date: 20230418
  Serious: No
  Sender: FDA-Public Use
  Company Number: None

PATIENT
  Age: 63 Year
  Sex: Male
  Weight: 91.63 kg

DRUGS (2)
  1. TALTZ [Suspect]
     Active Substance: IXEKIZUMAB
     Indication: Psoriasis
     Dosage: OTHER FREQUENCY : EVRY OTH WK..2-12;?
     Route: 058
     Dates: start: 202104
  2. TALTZ [Suspect]
     Active Substance: IXEKIZUMAB
     Indication: Polyarthritis

REACTIONS (1)
  - Hypotension [None]
